FAERS Safety Report 5916734-3 (Version None)
Quarter: 2008Q4

REPORT INFORMATION
  Report Type: 
  Country: None (occurrence: None)
  Receive Date: 20081013
  Receipt Date: 20081001
  Transmission Date: 20090506
  Serious: Yes (Other)
  Sender: FDA-Public Use
  Company Number: NO-PFIZER INC-2008006390

PATIENT
  Sex: Male

DRUGS (8)
  1. ZELDOX (CAPSULES) [Suspect]
     Indication: MENTAL DISORDER
     Route: 064
  2. ZOLOFT [Concomitant]
     Route: 064
     Dates: end: 20071123
  3. ABILIFY [Concomitant]
     Dosage: DAILY DOSE:15MG
     Route: 064
     Dates: end: 20071101
  4. EFFEXOR [Concomitant]
     Dosage: DAILY DOSE:75MG
     Route: 064
     Dates: end: 20071119
  5. LAMICTAL [Concomitant]
     Dosage: DAILY DOSE:300MG
     Route: 064
     Dates: end: 20071123
  6. TOPIMAX [Concomitant]
     Route: 064
     Dates: end: 20071123
  7. RIVOTRIL [Concomitant]
     Route: 064
     Dates: end: 20071123
  8. FLUNITRAZEPAM [Concomitant]
     Route: 064
     Dates: end: 20071123

REACTIONS (2)
  - DRUG EXPOSURE DURING PREGNANCY [None]
  - PREMATURE BABY [None]
